FAERS Safety Report 22532682 (Version 2)
Quarter: 2023Q2

REPORT INFORMATION
  Report Type: Spontaneous
  Country: US (occurrence: US)
  Receive Date: 20230607
  Receipt Date: 20230613
  Transmission Date: 20230722
  Serious: No
  Sender: FDA-Public Use
  Company Number: US-PFIZER INC-PV202300100824

PATIENT
  Age: 78 Year
  Sex: Female
  Weight: 92.99 kg

DRUGS (3)
  1. NURTEC ODT [Suspect]
     Active Substance: RIMEGEPANT SULFATE
     Indication: Migraine prophylaxis
     Dosage: 1 TABLET ON OR UNDER THE TONGUE EVERY 48 HOURS
     Route: 048
     Dates: start: 202305
  2. VALIUM [Suspect]
     Active Substance: DIAZEPAM
     Indication: Neuralgia
     Dosage: 1 MG, 2X/DAY
     Dates: start: 202305
  3. VALIUM [Suspect]
     Active Substance: DIAZEPAM
     Indication: Pain

REACTIONS (3)
  - Blood pressure increased [Unknown]
  - Pain [Unknown]
  - Renal disorder [Unknown]

NARRATIVE: CASE EVENT DATE: 20230501
